FAERS Safety Report 9025974 (Version 2)
Quarter: 2013Q1

REPORT INFORMATION
  Report Type: Spontaneous
  Country: JP (occurrence: None)
  Receive Date: 20130104
  Receipt Date: 20130108
  Transmission Date: 20140127
  Serious: Yes (Death)
  Sender: FDA-Public Use
  Company Number: JP-010477

PATIENT
  Age: 73 Year
  Sex: Male

DRUGS (13)
  1. DEGARELIX [Suspect]
     Indication: PROSTATE CANCER
     Route: 058
     Dates: start: 20121206, end: 20121206
  2. HARNAL [Concomitant]
  3. CASODEX [Concomitant]
  4. NEUROTROPIN /06251301/ [Concomitant]
  5. SELBEX [Concomitant]
  6. LOXONIN [Concomitant]
  7. TAKEPRON [Concomitant]
  8. NONTHRON [Concomitant]
  9. RECOMODULIN [Concomitant]
  10. LACTEC [Concomitant]
  11. SOLITA-T3 [Concomitant]
  12. NICHIPHAGEN [Concomitant]
  13. SAXIZON [Concomitant]

REACTIONS (3)
  - Disseminated intravascular coagulation [None]
  - Condition aggravated [None]
  - Cerebral haemorrhage [None]
